FAERS Safety Report 8586600-6 (Version None)
Quarter: 2012Q3

REPORT INFORMATION
  Report Type: 
  Country: None (occurrence: None)
  Receive Date: 20120810
  Receipt Date: 20120806
  Transmission Date: 20120928
  Serious: Yes (Disabling)
  Sender: FDA-Public Use
  Company Number: PHHY2012GB067710

PATIENT
  Age: 81 Year
  Sex: Female

DRUGS (3)
  1. SOLIFENACIN SUCCINATE [Concomitant]
     Indication: BLADDER IRRITATION
     Dosage: 5 MG
     Route: 048
     Dates: start: 20090612
  2. ACETAMINOPHEN AND CODEINE PHOSPHATE [Concomitant]
     Indication: ARTHRITIS
     Route: 048
     Dates: start: 20080826
  3. DOXAZOSIN MESYLATE [Suspect]
     Indication: HYPERTENSION
     Dosage: 1 MG
     Route: 048
     Dates: start: 20040322, end: 20100401

REACTIONS (1)
  - BALANCE DISORDER [None]
